FAERS Safety Report 8090304-6 (Version None)
Quarter: 2012Q1

REPORT INFORMATION
  Report Type: 
  Country: None (occurrence: None)
  Receive Date: 20120129
  Receipt Date: 20111111
  Transmission Date: 20120608
  Serious: No
  Sender: FDA-Public Use
  Company Number: US-ABBOTT-11P-163-0873657-00

PATIENT
  Sex: Female
  Weight: 99.88 kg

DRUGS (1)
  1. HUMIRA [Suspect]
     Indication: SARCOIDOSIS
     Dates: start: 20111110, end: 20111110

REACTIONS (5)
  - SARCOIDOSIS [None]
  - PARAESTHESIA [None]
  - OFF LABEL USE [None]
  - OEDEMA PERIPHERAL [None]
  - INJECTION SITE PAIN [None]
